FAERS Safety Report 6547503-1 (Version None)
Quarter: 2010Q1

REPORT INFORMATION
  Report Type: 
  Country: None (occurrence: None)
  Receive Date: 20100122
  Receipt Date: 20100112
  Transmission Date: 20100710
  Serious: Yes (Other)
  Sender: FDA-Public Use
  Company Number: GB-WATSON-2010-00506

PATIENT
  Age: 62 Year
  Sex: Female

DRUGS (3)
  1. DIAZEPAM [Suspect]
     Indication: INTENTIONAL OVERDOSE
     Dosage: UNK
     Route: 048
  2. CODRIX (WATSON LABORATORIES) [Suspect]
     Indication: PAIN
     Dosage: UNK
  3. CHLORAL HYDRATE [Suspect]
     Indication: INTENTIONAL OVERDOSE
     Dosage: UNK

REACTIONS (3)
  - CEREBROVASCULAR ACCIDENT [None]
  - HEMIPARESIS [None]
  - INTENTIONAL OVERDOSE [None]
